FAERS Safety Report 21556788 (Version 1)
Quarter: 2022Q4

REPORT INFORMATION
  Report Type: Spontaneous
  Country: TR (occurrence: TR)
  Receive Date: 20221104
  Receipt Date: 20221104
  Transmission Date: 20230113
  Serious: Yes (Hospitalization, Other)
  Sender: FDA-Public Use
  Company Number: TR-ALLERGAN-2236324US

PATIENT
  Sex: Male

DRUGS (1)
  1. BOTULINUM TOXIN TYPE A [Suspect]
     Active Substance: BOTULINUM TOXIN TYPE A
     Indication: Neurogenic bladder
     Dosage: UNK, SINGLE
     Route: 043

REACTIONS (4)
  - Urosepsis [Recovered/Resolved]
  - Peritonitis [Recovered/Resolved]
  - Pyelonephritis [Recovered/Resolved]
  - Off label use [Unknown]
